FAERS Safety Report 5200545-0 (Version None)
Quarter: 2006Q4

REPORT INFORMATION
  Report Type: 
  Country: None (occurrence: None)
  Receive Date: 20061016
  Receipt Date: 20051104
  Transmission Date: 20070319
  Serious: Yes (Other)
  Sender: FDA-Public Use
  Company Number: 2005151850

PATIENT
  Age: 26 Year
  Sex: Male

DRUGS (1)
  1. NEURONTIN [Suspect]
     Indication: ILL-DEFINED DISORDER
     Dates: start: 19990101, end: 20020101

REACTIONS (3)
  - DEAFNESS [None]
  - FAECAL INCONTINENCE [None]
  - SLEEP DISORDER [None]
